FAERS Safety Report 4517852-7 (Version None)
Quarter: 2004Q4

REPORT INFORMATION
  Report Type: 
  Country: None (occurrence: None)
  Receive Date: 20041203
  Receipt Date: 20041129
  Transmission Date: 20050328
  Serious: Yes (Hospitalization)
  Sender: FDA-Public Use
  Company Number: US-JNJFOC-20040904576

PATIENT
  Sex: Female

DRUGS (6)
  1. DURAGESIC [Suspect]
     Route: 062
     Dates: start: 20000101
  2. DURAGESIC [Suspect]
     Route: 062
     Dates: start: 20000101
  3. DURAGESIC [Suspect]
     Route: 062
     Dates: start: 20000101
  4. DURAGESIC [Suspect]
     Route: 062
     Dates: start: 20000101
  5. DURAGESIC [Suspect]
     Route: 062
     Dates: start: 20000101
  6. DURAGESIC [Suspect]
     Route: 062
     Dates: start: 20000101

REACTIONS (8)
  - ABDOMINAL PAIN [None]
  - ASTHENIA [None]
  - CONDITION AGGRAVATED [None]
  - CONSTIPATION [None]
  - DIARRHOEA [None]
  - EHLERS-DANLOS SYNDROME [None]
  - MEDICATION ERROR [None]
  - TREATMENT NONCOMPLIANCE [None]
